FAERS Safety Report 15752121 (Version 1)
Quarter: 2018Q4

REPORT INFORMATION
  Report Type: Spontaneous
  Country: US (occurrence: US)
  Receive Date: 20181221
  Receipt Date: 20181221
  Transmission Date: 20190205
  Serious: No
  Sender: FDA-Public Use
  Company Number: US-ASTRAZENECA-2018SF68691

PATIENT
  Age: 73 Year
  Sex: Female

DRUGS (1)
  1. RHINOCORT [Suspect]
     Active Substance: BUDESONIDE
     Indication: POSTOPERATIVE CARE
     Route: 045

REACTIONS (3)
  - Vision blurred [Unknown]
  - Off label use [Unknown]
  - Product use in unapproved indication [Unknown]
